FAERS Safety Report 9369876 (Version 1)
Quarter: 2013Q2

REPORT INFORMATION
  Report Type: Spontaneous
  Country: US (occurrence: US)
  Receive Date: 20130626
  Receipt Date: 20130626
  Transmission Date: 20140414
  Serious: No
  Sender: FDA-Public Use
  Company Number: US-009507513-1306USA011751

PATIENT
  Age: 61 Year
  Sex: Male

DRUGS (2)
  1. STROMECTOL [Suspect]
     Indication: ACARODERMATITIS
     Dosage: 15 MG, QW (0.2 MG/KG/DOSE)
     Route: 048
  2. STROMECTOL [Suspect]
     Dosage: 15 MG DAILY (0.2 MG/KG/DOSE DAILY); DAY 1, 2, 8, 9, 15, 22 AND 29
     Route: 048

REACTIONS (2)
  - Prescribed overdose [Unknown]
  - Off label use [Unknown]
